FAERS Safety Report 19993277 (Version 2)
Quarter: 2021Q4

REPORT INFORMATION
  Report Type: Spontaneous
  Country: AU (occurrence: AU)
  Receive Date: 20211025
  Receipt Date: 20211126
  Transmission Date: 20220303
  Serious: Yes (Death)
  Sender: FDA-Public Use
  Company Number: AU-VERTEX PHARMACEUTICALS-2021-016322

PATIENT
  Age: 28 Year
  Sex: Male

DRUGS (12)
  1. ORKAMBI [Suspect]
     Active Substance: IVACAFTOR\LUMACAFTOR
     Indication: Cystic fibrosis
     Dosage: 2 TABLET (200MG/125MG), BID
     Route: 048
     Dates: start: 20181219, end: 2020
  2. ORKAMBI [Suspect]
     Active Substance: IVACAFTOR\LUMACAFTOR
     Dosage: 2 TABLET (200MG/125MG), BID
     Route: 048
     Dates: start: 20210527, end: 2021
  3. AZITHROMYCIN [Concomitant]
     Active Substance: AZITHROMYCIN
     Dosage: 500MG MONDAY, WEDNESDAY, FRIDAY
     Route: 048
  4. CREON [Concomitant]
     Active Substance: PANCRELIPASE AMYLASE\PANCRELIPASE LIPASE\PANCRELIPASE PROTEASE
     Dosage: 25000 UNITS UP TO 15 DAILY WITH MEALS AND SNACK
     Route: 048
  5. DORNASE ALFA [Concomitant]
     Active Substance: DORNASE ALFA
     Dosage: 2.5MG/2.5ML 1 VIA NEBULIZER NIGHT
  6. FLUTICASONE PROPIONATE\SALMETEROL XINAFOATE [Concomitant]
     Active Substance: FLUTICASONE PROPIONATE\SALMETEROL XINAFOATE
     Dosage: MDI 250MCG/25MCG 2 PUFFS BD
  7. GLUCOLYTE [GLUCOSE;POTASSIUM CHLORIDE;SODIUM CHLORIDE] [Concomitant]
     Dosage: 8 SACHETS DAILY
  8. SODIUM CHLORIDE [Concomitant]
     Active Substance: SODIUM CHLORIDE
     Dosage: 5 ML, BID VIA NEBULIZER
  9. ALBUTEROL [Concomitant]
     Active Substance: ALBUTEROL
     Dosage: MDI 100MICOGRAMS 2-3 PUFFS BD
  10. SODIUM CHLORIDE [Concomitant]
     Active Substance: SODIUM CHLORIDE
     Dosage: 600MG UP TO 20 DAILY
     Route: 048
  11. CIPROFLOXACIN [Concomitant]
     Active Substance: CIPROFLOXACIN
     Indication: Infective pulmonary exacerbation of cystic fibrosis
     Dosage: 750MG BD PRN
  12. CHOLECALCIFEROL [Concomitant]
     Active Substance: CHOLECALCIFEROL
     Dosage: 10000UNITS
     Route: 030
     Dates: start: 20210526

REACTIONS (1)
  - Death [Fatal]

NARRATIVE: CASE EVENT DATE: 20210701
